FAERS Safety Report 24602921 (Version 1)
Quarter: 2024Q4

REPORT INFORMATION
  Report Type: Spontaneous
  Country: US (occurrence: None)
  Receive Date: 20241108
  Receipt Date: 20241108
  Transmission Date: 20250115
  Serious: Yes (Hospitalization)
  Sender: Public
  Company Number: None

PATIENT
  Sex: Female

DRUGS (2)
  1. SILDENAFIL CITRATE [Suspect]
     Active Substance: SILDENAFIL CITRATE
     Indication: Pulmonary arterial hypertension
     Dosage: FREQUENCY : TWICE A DAY;?
     Route: 048
     Dates: start: 202211
  2. REMODULIN MDV [Concomitant]

REACTIONS (12)
  - Cardiac failure [None]
  - Diarrhoea [None]
  - Headache [None]
  - Pain in jaw [None]
  - Pain [None]
  - Nausea [None]
  - Pain in extremity [None]
  - Mental disorder [None]
  - Therapy non-responder [None]
  - Dyspnoea [None]
  - Mood altered [None]
  - Decreased activity [None]
